FAERS Safety Report 6190748-3 (Version None)
Quarter: 2009Q2

REPORT INFORMATION
  Report Type: 
  Country: None (occurrence: None)
  Receive Date: 20090514
  Receipt Date: 20090508
  Transmission Date: 20091009
  Serious: Yes (Other)
  Sender: FDA-Public Use
  Company Number: US-ELI_LILLY_AND_COMPANY-US200904005371

PATIENT
  Sex: Male
  Weight: 94.785 kg

DRUGS (10)
  1. BYETTA [Suspect]
     Indication: TYPE 2 DIABETES MELLITUS
     Dosage: 10 UG, 2/D
     Route: 058
     Dates: start: 20071222, end: 20081124
  2. TRICOR [Concomitant]
     Indication: BLOOD TRIGLYCERIDES
     Dosage: 145 MG, DAILY (1/D)
     Route: 048
     Dates: start: 20080101
  3. METFORMIN HCL [Concomitant]
     Indication: DIABETES MELLITUS
     Dosage: 500 MG, 2/D
     Route: 048
     Dates: start: 20081110
  4. SPIRONOLACTONE [Concomitant]
     Indication: HYPERTENSION
     Dosage: 20 MG, DAILY (1/D)
     Route: 048
     Dates: start: 20080101
  5. LISINOPRIL HYDROCHLORTHIAZID [Concomitant]
     Indication: HYPERTENSION
     Route: 048
     Dates: start: 20080101
  6. ASPIRIN [Concomitant]
     Indication: DIABETES MELLITUS
     Dosage: 81 MG, UNK
     Route: 048
  7. OMEPRAZOLE [Concomitant]
     Dosage: 20 MG, DAILY (1/D)
     Route: 048
     Dates: start: 20080101
  8. QUESTRAN [Concomitant]
     Indication: DIARRHOEA
     Dosage: 4 G, DAILY (1/D)
     Route: 048
     Dates: start: 20080101
  9. XYZAL [Concomitant]
     Indication: HYPERSENSITIVITY
     Dosage: 5 MG, DAILY (1/D)
     Route: 048
     Dates: start: 20081002
  10. NAPROXEN [Concomitant]
     Dosage: 250 MG, AS NEEDED
     Dates: start: 20081110

REACTIONS (1)
  - PANCREATITIS [None]
